FAERS Safety Report 4888567-0 (Version None)
Quarter: 2005Q4

REPORT INFORMATION
  Report Type: 
  Country: None (occurrence: None)
  Receive Date: 20051215
  Receipt Date: 20050606
  Transmission Date: 20060501
  Serious: Yes (Other)
  Sender: FDA-Public Use
  Company Number: 2005065819

PATIENT
  Age: 37 Year
  Sex: Female
  Weight: 97.5234 kg

DRUGS (5)
  1. BEXTRA [Suspect]
     Indication: OSTEOARTHRITIS
     Dosage: 10 MG, 1 D, ORAL
     Route: 048
     Dates: start: 20050209, end: 20050216
  2. FLEXERIL [Concomitant]
  3. NEXIUM [Concomitant]
  4. NORVASC [Concomitant]
  5. FUROSEMIDE [Concomitant]

REACTIONS (7)
  - ANXIETY [None]
  - CHEST DISCOMFORT [None]
  - CHILLS [None]
  - COLD SWEAT [None]
  - DYSPNOEA [None]
  - NAUSEA [None]
  - TINNITUS [None]
